FAERS Safety Report 19082722 (Version 5)
Quarter: 2021Q3

REPORT INFORMATION
  Report Type: Report from Study
  Country: IL (occurrence: IL)
  Receive Date: 20210401
  Receipt Date: 20210702
  Transmission Date: 20211014
  Serious: Yes (Other)
  Sender: FDA-Public Use
  Company Number: IL-BAYER-2021-102074

PATIENT
  Age: 63 Year
  Sex: Male

DRUGS (8)
  1. GLUCOMIN [Concomitant]
     Active Substance: METFORMIN HYDROCHLORIDE
     Dosage: UNK
  2. XOFIGO [Suspect]
     Active Substance: RADIUM RA-223 DICHLORIDE
     Indication: METASTASIS
     Dosage: UNK
  3. LIPITOR [Concomitant]
     Active Substance: ATORVASTATIN CALCIUM
     Dosage: UNK
  4. ACAMOL [PARACETAMOL] [Concomitant]
     Active Substance: ACETAMINOPHEN
     Dosage: UNK
  5. DECAPEPTYL [TRIPTORELIN] [Concomitant]
     Active Substance: TRIPTORELIN
     Dosage: UNK
  6. VITACAL D [Concomitant]
     Dosage: UNK
  7. XOFIGO [Suspect]
     Active Substance: RADIUM RA-223 DICHLORIDE
     Indication: HORMONE-REFRACTORY PROSTATE CANCER
     Dosage: UNK
     Dates: start: 20210303, end: 20210303
  8. BUTRANS [Concomitant]
     Active Substance: BUPRENORPHINE
     Dosage: UNK

REACTIONS (7)
  - Abdominal pain [Not Recovered/Not Resolved]
  - Metastases to bone [None]
  - Faeces discoloured [None]
  - Nausea [Recovering/Resolving]
  - Asthenia [Recovered/Resolved]
  - Pain [Recovering/Resolving]
  - Pain in extremity [Recovering/Resolving]

NARRATIVE: CASE EVENT DATE: 202103
